FAERS Safety Report 9646190 (Version 2)
Quarter: 2014Q1

REPORT INFORMATION
  Report Type: Spontaneous
  Country: CA (occurrence: CA)
  Receive Date: 20131025
  Receipt Date: 20140108
  Transmission Date: 20141002
  Serious: Yes (Other)
  Sender: FDA-Public Use
  Company Number: ALCN2013CA005360

PATIENT
  Age: 44 Year
  Sex: Male

DRUGS (2)
  1. SYSTANE VITAMIN OMEGA-3 SUPPLEMENT [Suspect]
     Indication: KERATITIS
     Dosage: 1 DF, BID
     Route: 048
     Dates: start: 20131002, end: 20131003
  2. PAIN RELIEVER [Concomitant]
     Indication: PAIN
     Dosage: 1 DF, PRN
     Route: 048

REACTIONS (1)
  - Depression [Recovered/Resolved]
